FAERS Safety Report 5059074-X (Version None)
Quarter: 2006Q3

REPORT INFORMATION
  Report Type: 
  Country: None (occurrence: None)
  Receive Date: 20060718
  Receipt Date: 20060710
  Transmission Date: 20061208
  Serious: Yes (Death)
  Sender: FDA-Public Use
  Company Number: USA-2006-0024579

PATIENT
  Age: 43 Year
  Sex: Female
  Weight: 86.2 kg

DRUGS (3)
  1. MORPHINE SULFATE [Suspect]
     Indication: DRUG USE FOR UNKNOWN INDICATION
  2. HYDROMORPHONE HCL [Suspect]
     Indication: DRUG USE FOR UNKNOWN INDICATION
  3. BENZODIAZEPINE DERIVATIVES () [Suspect]
     Indication: DRUG USE FOR UNKNOWN INDICATION

REACTIONS (9)
  - BRONCHOPNEUMONIA [None]
  - DRUG TOXICITY [None]
  - GASTRIC HAEMORRHAGE [None]
  - HAEMORRHAGE [None]
  - HEPATIC NECROSIS [None]
  - HEPATIC STEATOSIS [None]
  - LUNG ABSCESS [None]
  - PERITONEAL HAEMORRHAGE [None]
  - PULMONARY OEDEMA [None]
